FAERS Safety Report 4360316-4 (Version None)
Quarter: 2004Q2

REPORT INFORMATION
  Report Type: 
  Country: None (occurrence: None)
  Receive Date: 20040514
  Receipt Date: 20040504
  Transmission Date: 20050107
  Serious: Yes (Hospitalization)
  Sender: FDA-Public Use
  Company Number: US-JNJFOC-20040205348

PATIENT
  Age: 78 Year
  Sex: Male

DRUGS (2)
  1. OXYBUTYNIN CHLORIDE [Suspect]
     Indication: DYSURIA
     Dosage: RECEIVED PLACEBO OR OROS OXYBUTYNIN 10 MG THREE TIMES A WEEK
     Dates: start: 20040111, end: 20040210
  2. PREVACID [Concomitant]

REACTIONS (10)
  - ABDOMINAL DISTENSION [None]
  - ABDOMINAL PAIN UPPER [None]
  - ANAEMIA [None]
  - CHOLELITHIASIS [None]
  - COLONIC POLYP [None]
  - DIVERTICULUM [None]
  - FAECAL OCCULT BLOOD POSITIVE [None]
  - ILEUS [None]
  - INFLAMMATORY BOWEL DISEASE [None]
  - NAUSEA [None]
